FAERS Safety Report 4606929-3 (Version None)
Quarter: 2005Q1

REPORT INFORMATION
  Report Type: 
  Country: None (occurrence: None)
  Receive Date: 20050309
  Receipt Date: 20050302
  Transmission Date: 20050727
  Serious: Yes (Death)
  Sender: FDA-Public Use
  Company Number: F01200403709

PATIENT
  Age: 62 Year
  Sex: Male
  Weight: 83.9 kg

DRUGS (17)
  1. OXALIPLATIN-SOLUTION- 130 MG/M2 [Suspect]
     Indication: NON-SMALL CELL LUNG CANCER
     Dosage: 267 MG Q3W - INTRAVENOUS NOS
     Route: 042
     Dates: start: 20041110, end: 20041110
  2. GEMCITABINE - SOLUTION - 1000 MG/M2 [Suspect]
     Dosage: 2050 MG Q3W - INTRAVENOUS NOS
     Route: 042
     Dates: start: 20041117, end: 20041117
  3. HYDROCODONE/PHENYLTOLOXAMINE [Concomitant]
  4. HYDROCODONE BITARTRATE [Concomitant]
  5. OXYCODONE HCL [Concomitant]
  6. MAGNESIUM SULFATE [Concomitant]
  7. GRANISETRON [Concomitant]
  8. DEXAMETHASONE [Concomitant]
  9. CALCIUM GLUCONATE [Concomitant]
  10. MAGNESIUM SULFATE [Concomitant]
  11. MILK OF MAGNESIA [Concomitant]
  12. OXYCODONE HCL [Concomitant]
  13. LORAZEPAM [Concomitant]
  14. PROCHLORPERAZINE EDISYLATE [Concomitant]
  15. PANTOPRAZOLE SODIUM [Concomitant]
  16. CLOPIDOGREL BISULFATE [Concomitant]
  17. ACETYLSALICYLIC ACID SRT [Concomitant]

REACTIONS (11)
  - ABASIA [None]
  - ATRIAL FLUTTER [None]
  - CARDIAC ARREST [None]
  - CHEST PAIN [None]
  - EPISTAXIS [None]
  - HAEMATEMESIS [None]
  - HAEMOPTYSIS [None]
  - HAEMORRHAGE [None]
  - HEART RATE INCREASED [None]
  - PLATELET COUNT DECREASED [None]
  - SPINAL DISORDER [None]
